FAERS Safety Report 7989736 (Version 3)
Quarter: 2013Q2

REPORT INFORMATION
  Report Type: Spontaneous
  Country: US (occurrence: None)
  Receive Date: 20110520
  Receipt Date: 20130611
  Transmission Date: 20140414
  Serious: Yes (Hospitalization, Other)
  Sender: FDA-Public Use
  Company Number: 2011028626

PATIENT
  Age: 57 Year
  Sex: Female
  Weight: 71.67 kg

DRUGS (17)
  1. HIZENTRA [Suspect]
     Indication: IMMUNODEFICIENCY COMMON VARIABLE
     Dosage: SEE IMAGE: SUBCUTANEOUS
     Route: 058
     Dates: start: 20110318
  2. RESTASIS [Concomitant]
  3. PREDNISONE [Concomitant]
  4. DOXYCYCLINE [Concomitant]
  5. KLONOPIN [Concomitant]
  6. NORVASC [Concomitant]
  7. TOPROL XL [Concomitant]
  8. PAXIL [Concomitant]
  9. ASTELIN (DIPROPHYLINE) [Concomitant]
  10. MACROBID [Concomitant]
  11. CYMBALTA (DULOXETINE HYDROCHLORIDE) [Concomitant]
  12. XANAX (ALPRAZOLAM) [Concomitant]
  13. AMBIEN (ZOLPIDEM TARTRATE) [Concomitant]
  14. ASPIRIN (ACETYLSALICYLIC ACID) [Concomitant]
  15. DIPHENHYDRAMINE (DIPHENHYDRAMINE) [Concomitant]
  16. LIDOCAINE (LIDOCAINE) [Concomitant]
  17. EPI-PEN (EPINEPHRINE HYDROCHLORIDE) [Concomitant]

REACTIONS (11)
  - UPPER RESPIRATORY TRACT INFECTION [None]
  - CYSTITIS [None]
  - INFUSION SITE ERYTHEMA [None]
  - INFUSION SITE SWELLING [None]
  - Increased tendency to bruise [None]
  - Dizziness [None]
  - Syncope [None]
  - Fall [None]
  - Dehydration [None]
  - Loss of consciousness [None]
  - Hypertension [None]
